FAERS Safety Report 18236302 (Version 1)
Quarter: 2020Q3

REPORT INFORMATION
  Report Type: Spontaneous
  Country: US (occurrence: US)
  Receive Date: 20200906
  Receipt Date: 20200906
  Transmission Date: 20201103
  Serious: Yes (Death, Other)
  Sender: FDA-Public Use
  Company Number: US-AMGEN-USASP2020143387

PATIENT
  Age: 50 Year
  Sex: Female

DRUGS (1)
  1. ETANERCEPT [Suspect]
     Active Substance: ETANERCEPT
     Indication: TOXIC EPIDERMAL NECROLYSIS
     Dosage: UNK
     Route: 065

REACTIONS (3)
  - Off label use [Fatal]
  - Cardiac arrest [Fatal]
  - Drug ineffective for unapproved indication [Fatal]
